FAERS Safety Report 13668435 (Version 1)
Quarter: 2017Q2

REPORT INFORMATION
  Report Type: Spontaneous
  Country: GR (occurrence: GR)
  Receive Date: 20170620
  Receipt Date: 20170620
  Transmission Date: 20170830
  Serious: Yes (Hospitalization, Other)
  Sender: FDA-Public Use
  Company Number: GR-APOTEX-2017AP013296

PATIENT
  Age: 41 Year
  Sex: Male

DRUGS (5)
  1. CLOZAPINE. [Concomitant]
     Active Substance: CLOZAPINE
     Indication: PSYCHOTIC DISORDER
     Dosage: UNK
     Route: 065
  2. MIRTAZAPINE. [Suspect]
     Active Substance: MIRTAZAPINE
     Indication: PSYCHOTIC DISORDER
     Dosage: 30 MG, DAILY
     Route: 065
  3. MIRTAZAPINE. [Suspect]
     Active Substance: MIRTAZAPINE
     Dosage: 15 MG, UNK
     Route: 065
  4. PAXIL [Suspect]
     Active Substance: PAROXETINE HYDROCHLORIDE
     Indication: PSYCHOTIC DISORDER
     Dosage: 30 MG, QD
     Route: 065
  5. CLOMIPRAMINE [Suspect]
     Active Substance: CLOMIPRAMINE
     Indication: PSYCHOTIC DISORDER
     Dosage: 25 MG, UNK
     Route: 065

REACTIONS (19)
  - Serotonin syndrome [Recovered/Resolved]
  - Autonomic nervous system imbalance [Unknown]
  - Tachycardia [Unknown]
  - Muscle rigidity [Unknown]
  - Brain oedema [Unknown]
  - Trismus [Unknown]
  - Generalised tonic-clonic seizure [Unknown]
  - Confusional state [Unknown]
  - Disorientation [Unknown]
  - Agitation [Unknown]
  - Hypertension [Unknown]
  - Hyponatraemia [Unknown]
  - Mental status changes [Unknown]
  - Tremor [Unknown]
  - White blood cell count increased [Unknown]
  - Diabetes insipidus [Unknown]
  - Neuromyopathy [Unknown]
  - Hyperhidrosis [Unknown]
  - Diarrhoea [Unknown]
